FAERS Safety Report 4972963-7 (Version None)
Quarter: 2006Q2

REPORT INFORMATION
  Report Type: 
  Country: None (occurrence: None)
  Receive Date: 20060410
  Receipt Date: 20060321
  Transmission Date: 20061013
  Serious: Yes (Disabling)
  Sender: FDA-Public Use
  Company Number: USA0510111814

PATIENT
  Age: 72 Year
  Sex: Male

DRUGS (6)
  1. ALIMTA [Suspect]
     Indication: NON-SMALL CELL LUNG CANCER METASTATIC
     Dosage: 1000 MG; SEE IMAGE
     Dates: start: 20050602, end: 20050713
  2. ALIMTA [Suspect]
     Indication: NON-SMALL CELL LUNG CANCER METASTATIC
     Dosage: 1000 MG; SEE IMAGE
     Dates: start: 20050701
  3. THERAPEUTIC RADIOPHARMACEUTICALS [Concomitant]
  4. VITAMIN B12 [Concomitant]
  5. FOLIC ACID [Concomitant]
  6. CORTICOSTEROIDS [Concomitant]

REACTIONS (3)
  - HERPES ZOSTER [None]
  - IMMUNE SYSTEM DISORDER [None]
  - NEURALGIA [None]
